FAERS Safety Report 10224237 (Version 1)
Quarter: 2014Q2

REPORT INFORMATION
  Report Type: Spontaneous
  Country: US (occurrence: None)
  Receive Date: 20140605
  Receipt Date: 20140605
  Transmission Date: 20141212
  Serious: Yes (Other)
  Sender: FDA-Public Use
  Company Number: 2014-19648

PATIENT
  Age: 83 Year
  Sex: Male

DRUGS (5)
  1. EYLEA (AFLIBERCEPT) INJECTION)AFLIBERCEPT) [Suspect]
     Indication: MACULAR OEDEMA
     Dosage: UNK, INTRAOCULAR
     Route: 031
     Dates: start: 201312
  2. METOPROLOL (METOPROLOL) [Concomitant]
  3. MULTIVITAMIN (ASCORBIC ACID, CALCIUM PANTOTHENATE, ERGOCALCIFEROL, NICOTINAMIDE, PYRIDOXINE HYDROCHLORIDE, RETINOL, RIBOFLAVIN, THIAMINE HYDROCHLORIDE) [Concomitant]
  4. ASPIRIN (ACETYLSALICYLIC ACID) [Concomitant]
  5. HYDROCODONE (HYDROCODONE) [Concomitant]

REACTIONS (2)
  - Blindness [None]
  - Endophthalmitis [None]
